FAERS Safety Report 7592804-1 (Version None)
Quarter: 2011Q3

REPORT INFORMATION
  Report Type: 
  Country: None (occurrence: None)
  Receive Date: 20110706
  Receipt Date: 20110630
  Transmission Date: 20111222
  Serious: Yes (Other)
  Sender: FDA-Public Use
  Company Number: US-PFIZER INC-2011063419

PATIENT
  Sex: Female

DRUGS (6)
  1. XANAX [Concomitant]
     Indication: DEPRESSION
  2. CHANTIX [Suspect]
     Indication: SMOKING CESSATION THERAPY
     Dosage: SAMPLE STARTER PACK AND MONTHLY SAMPLE PACK
     Dates: start: 20090401, end: 20090601
  3. INSULIN DETEMIR [Concomitant]
     Indication: DIABETES MELLITUS
     Dosage: UNK
     Dates: start: 20070101
  4. XANAX [Concomitant]
     Indication: ANXIETY
     Dosage: 1 MG, UNK
     Dates: start: 20020101, end: 20100101
  5. LEXAPRO [Concomitant]
     Indication: DEPRESSION
     Dosage: 20 MG, UNK
     Dates: start: 20080101, end: 20100101
  6. LEXAPRO [Concomitant]
     Indication: ANXIETY

REACTIONS (2)
  - ANXIETY [None]
  - DEPRESSION [None]
